APPROVED DRUG PRODUCT: HEPARIN SODIUM 1,000 UNITS AND SODIUM CHLORIDE 0.9% IN PLASTIC CONTAINER
Active Ingredient: HEPARIN SODIUM
Strength: 200 UNITS/100ML
Dosage Form/Route: INJECTABLE;INJECTION
Application: N018609 | Product #001 | TE Code: AP
Applicant: BAXTER HEALTHCARE CORP
Approved: Apr 28, 1982 | RLD: No | RS: No | Type: RX